FAERS Safety Report 18963306 (Version 1)
Quarter: 2021Q1

REPORT INFORMATION
  Report Type: Report from Study
  Country: US (occurrence: US)
  Receive Date: 20210303
  Receipt Date: 20210303
  Transmission Date: 20210420
  Serious: Yes (Other)
  Sender: FDA-Public Use
  Company Number: US-MYLANLABS-2021M1012194

PATIENT
  Age: 80 Year
  Sex: Male

DRUGS (9)
  1. XTANDI [Suspect]
     Active Substance: ENZALUTAMIDE
     Indication: PROSTATE CANCER
     Dosage: 160 MILLIGRAM, QD
     Route: 048
     Dates: start: 20180919
  2. XTANDI [Suspect]
     Active Substance: ENZALUTAMIDE
     Dosage: 160 MILLIGRAM, QD
     Route: 048
     Dates: end: 20201104
  3. MYRBETRIQ [Concomitant]
     Active Substance: MIRABEGRON
     Dosage: UNK
  4. SYMBICORT [Suspect]
     Active Substance: BUDESONIDE\FORMOTEROL FUMARATE DIHYDRATE
     Indication: PRODUCT USED FOR UNKNOWN INDICATION
     Dosage: UNK
     Route: 065
  5. LUPRON [Suspect]
     Active Substance: LEUPROLIDE ACETATE
     Indication: PRODUCT USED FOR UNKNOWN INDICATION
     Dosage: UNK
     Route: 065
  6. ABIRATERONE MYLAN [Suspect]
     Active Substance: ABIRATERONE
     Indication: PRODUCT USED FOR UNKNOWN INDICATION
     Dosage: UNK
     Route: 065
  7. XTANDI [Suspect]
     Active Substance: ENZALUTAMIDE
     Dosage: UNK
  8. XTANDI [Suspect]
     Active Substance: ENZALUTAMIDE
     Dosage: UNK
  9. XTANDI [Suspect]
     Active Substance: ENZALUTAMIDE
     Dosage: UNK

REACTIONS (18)
  - Prostatic specific antigen increased [Not Recovered/Not Resolved]
  - Limb injury [Unknown]
  - Hot flush [Unknown]
  - Lacrimation increased [Unknown]
  - Bladder disorder [Unknown]
  - Chronic obstructive pulmonary disease [Unknown]
  - Malignant neoplasm progression [Unknown]
  - Sleep disorder [Unknown]
  - Erythema [Unknown]
  - Tremor [Recovering/Resolving]
  - Anxiety [Recovering/Resolving]
  - Renal disorder [Unknown]
  - Fatigue [Unknown]
  - Fall [Unknown]
  - Dementia Alzheimer^s type [Unknown]
  - Vision blurred [Unknown]
  - Feeling jittery [Unknown]
  - Illness [Unknown]

NARRATIVE: CASE EVENT DATE: 20201112
